FAERS Safety Report 9602042 (Version 1)
Quarter: 2013Q4

REPORT INFORMATION
  Report Type: Spontaneous
  Country: IT (occurrence: None)
  Receive Date: 20131002
  Receipt Date: 20131002
  Transmission Date: 20140711
  Serious: Yes (Hospitalization)
  Sender: FDA-Public Use
  Company Number: AUR-APL-2013-08126

PATIENT
  Sex: 0

DRUGS (3)
  1. IRBESARTAN (IRBESARTAN) [Suspect]
     Indication: HYPERTENSION
     Dosage: 150 MG (150MG, 1 IN 1 D) , UNKNOWN
  2. ETHINYLESTRADIOL W/GESTODENE [Suspect]
     Indication: CONTRACEPTION
     Route: 048
  3. CAMELLIA SINENSIS [Suspect]
     Indication: PRODUCT USED FOR UNKNOWN INDICATION
     Dosage: EVERY OTHER DAY (1.0 G/DIE OF

REACTIONS (3)
  - Hepatic failure [None]
  - Liver injury [None]
  - Autoimmune hepatitis [None]
